FAERS Safety Report 5467920-0 (Version None)
Quarter: 2007Q3

REPORT INFORMATION
  Report Type: 
  Country: None (occurrence: None)
  Receive Date: 20070924
  Receipt Date: 20070914
  Transmission Date: 20080115
  Serious: Yes (Life-Threatening, Other)
  Sender: FDA-Public Use
  Company Number: 2007-01820

PATIENT
  Age: 71 Year
  Sex: Female
  Weight: 63.6 kg

DRUGS (9)
  1. VELCADE [Suspect]
     Indication: WALDENSTROM'S MACROGLOBULINAEMIA
     Dosage: 2.20 MG, IV BOLUS
     Route: 040
     Dates: start: 20070227, end: 20070601
  2. RITUXIMAB(RITUXIMAB) [Suspect]
     Indication: WALDENSTROM'S MACROGLOBULINAEMIA
     Dosage: 630.00 MG, INTRAVENOUS
     Route: 042
     Dates: start: 20070227, end: 20070529
  3. ACYCLOVIR [Concomitant]
  4. AMITRIPTYLINE HCL [Concomitant]
  5. LEVOTHYROXINE SODIUM [Concomitant]
  6. LANSOPRAZOLE [Concomitant]
  7. CEFUROXIME [Concomitant]
  8. CODEINE PHOSPHATE (CODEINE PHOSPHATE) [Concomitant]
  9. FYBOGEL (ISPAGHULA) [Concomitant]

REACTIONS (1)
  - NEUTROPENIA [None]
